FAERS Safety Report 6679516-3 (Version None)
Quarter: 2010Q2

REPORT INFORMATION
  Report Type: 
  Country: None (occurrence: None)
  Receive Date: 20100413
  Receipt Date: 20100407
  Transmission Date: 20101027
  Serious: Yes (Other)
  Sender: FDA-Public Use
  Company Number: B0640712A

PATIENT
  Sex: Female

DRUGS (1)
  1. ALLI [Suspect]
     Dosage: 3CAP PER DAY
     Route: 065

REACTIONS (5)
  - FLATULENCE [None]
  - HYPERSENSITIVITY [None]
  - PRURITUS [None]
  - RASH [None]
  - RECTAL HAEMORRHAGE [None]
